FAERS Safety Report 17770172 (Version 1)
Quarter: 2020Q2

REPORT INFORMATION
  Report Type: Spontaneous
  Country: US (occurrence: US)
  Receive Date: 20200512
  Receipt Date: 20200512
  Transmission Date: 20200714
  Serious: No
  Sender: FDA-Public Use
  Company Number: None

PATIENT
  Age: 57 Year
  Sex: Female
  Weight: 84.4 kg

DRUGS (1)
  1. KANJINTI [Suspect]
     Active Substance: TRASTUZUMAB-ANNS
     Indication: BREAST CANCER
     Dosage: ?          OTHER FREQUENCY:Q21D;?
     Route: 042
     Dates: start: 20200422, end: 20200422

REACTIONS (2)
  - Pain [None]
  - Chills [None]

NARRATIVE: CASE EVENT DATE: 20200422
